FAERS Safety Report 7285850-9 (Version None)
Quarter: 2011Q1

REPORT INFORMATION
  Report Type: 
  Country: None (occurrence: None)
  Receive Date: 20110210
  Receipt Date: 20110203
  Transmission Date: 20110831
  Serious: Yes (Hospitalization, Other)
  Sender: FDA-Public Use
  Company Number: US-ABBOTT-11P-163-0702636-00

PATIENT
  Age: 25 Year
  Sex: Female

DRUGS (3)
  1. ZONISAMIDE [Concomitant]
     Indication: PRODUCT USED FOR UNKNOWN INDICATION
  2. SYNTHROID [Concomitant]
     Indication: PRODUCT USED FOR UNKNOWN INDICATION
  3. DEPAKOTE [Suspect]
     Indication: PRODUCT USED FOR UNKNOWN INDICATION

REACTIONS (7)
  - IDIOSYNCRATIC DRUG REACTION [None]
  - THROMBOCYTOPENIA [None]
  - HYPERAMMONAEMIA [None]
  - COAGULOPATHY [None]
  - HEPATOTOXICITY [None]
  - TOXICITY TO VARIOUS AGENTS [None]
  - METABOLIC ACIDOSIS [None]
